FAERS Safety Report 6490198-6 (Version None)
Quarter: 2009Q4

REPORT INFORMATION
  Report Type: 
  Country: None (occurrence: None)
  Receive Date: 20091211
  Receipt Date: 20091207
  Transmission Date: 20100525
  Serious: Yes (Death, Hospitalization, Other)
  Sender: FDA-Public Use
  Company Number: PHHY2009NZ54147

PATIENT
  Age: 47 Year
  Sex: Male

DRUGS (3)
  1. CYCLOSPORINE [Suspect]
     Indication: RENAL TRANSPLANT
  2. PREDNISOLONE [Suspect]
     Indication: RENAL TRANSPLANT
  3. MYCOPHENOLATE MOFETIL [Suspect]
     Indication: RENAL TRANSPLANT

REACTIONS (16)
  - ACUTE ABDOMEN [None]
  - BLOOD CULTURE POSITIVE [None]
  - COLITIS [None]
  - COMPLICATIONS OF TRANSPLANTED KIDNEY [None]
  - CONFUSIONAL STATE [None]
  - DELIRIUM [None]
  - DIARRHOEA [None]
  - ESCHERICHIA INFECTION [None]
  - GASTROINTESTINAL MUCOSAL DISORDER [None]
  - HAEMODIALYSIS [None]
  - HEPATIC FUNCTION ABNORMAL [None]
  - HERPES VIRUS INFECTION [None]
  - LARGE INTESTINAL ULCER [None]
  - PANCYTOPENIA [None]
  - RENAL IMPAIRMENT [None]
  - RENAL TUBULAR NECROSIS [None]
